FAERS Safety Report 6922493-8 (Version None)
Quarter: 2010Q3

REPORT INFORMATION
  Report Type: 
  Country: None (occurrence: None)
  Receive Date: 20100813
  Receipt Date: 20100615
  Transmission Date: 20110219
  Serious: No
  Sender: FDA-Public Use
  Company Number: US-BAYER-201026511NA

PATIENT
  Age: 63 Year
  Sex: Male
  Weight: 86 kg

DRUGS (5)
  1. ULTRAVIST 300 [Suspect]
     Indication: COMPUTERISED TOMOGRAM KIDNEY
     Dosage: AS USED: 129 ML
     Route: 042
     Dates: start: 20100615, end: 20100615
  2. BENADRYL [Concomitant]
     Indication: PREMEDICATION
     Dosage: 1/2 HOUR PRIOR TO SCAN @ 12:20 PM
     Dates: start: 20100615, end: 20100615
  3. VYTORIN [Concomitant]
  4. TRICOR [Concomitant]
  5. ACTOS [Concomitant]

REACTIONS (1)
  - URTICARIA [None]
